FAERS Safety Report 21583774 (Version 1)
Quarter: 2022Q4

REPORT INFORMATION
  Report Type: Spontaneous
  Country: US (occurrence: US)
  Receive Date: 20221111
  Receipt Date: 20221111
  Transmission Date: 20230112
  Serious: No
  Sender: FDA-Public Use
  Company Number: US-PFIZER INC-202201288002

PATIENT
  Sex: Female

DRUGS (4)
  1. CARBOPLATIN [Suspect]
     Active Substance: CARBOPLATIN
     Indication: Breast cancer
     Dosage: 150 MG
  2. CARBOPLATIN [Suspect]
     Active Substance: CARBOPLATIN
     Dosage: 160 MG, WEEKLY (EVERY 7 DAYS)
     Route: 042
     Dates: start: 20220927
  3. KEYTRUDA [Concomitant]
     Active Substance: PEMBROLIZUMAB
     Indication: Breast cancer
     Dosage: 200 MG (EVERY 21 DAYS)
     Dates: start: 20220927
  4. PACLITAXEL [Concomitant]
     Active Substance: PACLITAXEL
     Indication: Breast cancer
     Dosage: 120 MG, WEEKLY (EVERY 7 DAYS)
     Dates: start: 20220927

REACTIONS (3)
  - Feeling hot [Unknown]
  - Pain [Unknown]
  - Off label use [Unknown]

NARRATIVE: CASE EVENT DATE: 20220927
